FAERS Safety Report 11128612 (Version 2)
Quarter: 2015Q2

REPORT INFORMATION
  Report Type: Spontaneous
  Country: FR (occurrence: FR)
  Receive Date: 20150521
  Receipt Date: 20150528
  Transmission Date: 20150821
  Serious: Yes (Hospitalization, Other)
  Sender: FDA-Public Use
  Company Number: FR-PFIZER INC-2015164612

PATIENT
  Age: 76 Year
  Sex: Male

DRUGS (7)
  1. CELIPROLOL [Concomitant]
     Active Substance: CELIPROLOL
     Dosage: 100 MG, DAILY
  2. KARDEGIC [Concomitant]
     Active Substance: ASPIRIN LYSINE
     Dosage: 75 MG, DAILY
  3. XATRAL LP [Concomitant]
     Active Substance: ALFUZOSIN
     Dosage: 10 MG, DAILY
  4. NOVORAPID [Concomitant]
     Active Substance: INSULIN ASPART
  5. ZYVOXID [Suspect]
     Active Substance: LINEZOLID
     Indication: URINARY TRACT INFECTION
     Dosage: 600 MG, 2X/DAY
     Route: 048
     Dates: start: 20150318, end: 20150407
  6. LEVEMIR [Concomitant]
     Active Substance: INSULIN DETEMIR
  7. PRAVASTATIN ACCORD [Concomitant]
     Dosage: 10 MG, DAILY

REACTIONS (1)
  - Acute kidney injury [Recovered/Resolved]

NARRATIVE: CASE EVENT DATE: 20150407
